FAERS Safety Report 5072384-5 (Version None)
Quarter: 2006Q3

REPORT INFORMATION
  Report Type: 
  Country: None (occurrence: None)
  Receive Date: 20060710
  Receipt Date: 20060306
  Transmission Date: 20061208
  Serious: Yes (Other)
  Sender: FDA-Public Use
  Company Number: PROG00206000749

PATIENT
  Age: 37 Year
  Sex: Female

DRUGS (1)
  1. PROMETRIUM [Suspect]
     Indication: ILL-DEFINED DISORDER
     Dosage: 200 MILLIGRAM(S) QD ORAL DAILY DOSE: 200 MILLIGRAM(S)
     Route: 048
     Dates: start: 20060207, end: 20060207

REACTIONS (3)
  - ABORTION SPONTANEOUS [None]
  - DIARRHOEA [None]
  - VOMITING [None]
